FAERS Safety Report 6512388-6 (Version None)
Quarter: 2009Q4

REPORT INFORMATION
  Report Type: 
  Country: None (occurrence: None)
  Receive Date: 20091222
  Receipt Date: 20091215
  Transmission Date: 20100525
  Serious: Yes (Hospitalization, Other)
  Sender: FDA-Public Use
  Company Number: BR-ELI_LILLY_AND_COMPANY-BR200909003202

PATIENT
  Sex: Female

DRUGS (7)
  1. FORTEO [Suspect]
     Indication: OSTEOPOROSIS
     Dosage: UNK, DAILY (1/D)
     Route: 058
     Dates: start: 20090101
  2. ALDACTONE [Concomitant]
     Dosage: UNK, UNKNOWN
     Route: 065
  3. CARVEDILOL [Concomitant]
     Dosage: UNK, UNKNOWN
     Route: 065
  4. LASIX [Concomitant]
     Dosage: UNK, UNKNOWN
     Route: 065
  5. MODURETIC 5-50 [Concomitant]
     Dosage: UNK, UNKNOWN
     Route: 065
  6. SUSTRATE [Concomitant]
     Dosage: UNK, UNKNOWN
     Route: 065
  7. CILOSTAZOL [Concomitant]
     Dosage: UNK, UNKNOWN
     Route: 065

REACTIONS (1)
  - LIMB INJURY [None]
